FAERS Safety Report 5141980-9 (Version None)
Quarter: 2006Q4

REPORT INFORMATION
  Report Type: 
  Country: None (occurrence: None)
  Receive Date: 20061102
  Receipt Date: 20061018
  Transmission Date: 20070319
  Serious: Yes (Other)
  Sender: FDA-Public Use
  Company Number: BR-BOEHRINGER INGELHEIM GMBH, GERMANY-2006-DE-05472GD

PATIENT
  Sex: Male

DRUGS (3)
  1. DIPYRONE INJ [Suspect]
     Dosage: ONE BOTTLE
     Route: 048
  2. CHLORPROMAZINE HYDROCHLORIDE [Suspect]
     Dosage: 3 TABLETS
     Route: 048
  3. CARBAMAZEPINE [Suspect]
     Dosage: 8 TABLETS
     Route: 048

REACTIONS (2)
  - DRUG ABUSER [None]
  - SUICIDE ATTEMPT [None]
